FAERS Safety Report 7073567-5 (Version None)
Quarter: 2010Q4

REPORT INFORMATION
  Report Type: 
  Country: None (occurrence: None)
  Receive Date: 20101029
  Receipt Date: 20100709
  Transmission Date: 20110411
  Serious: No
  Sender: FDA-Public Use
  Company Number: A0869513A

PATIENT
  Age: 58 Year
  Sex: Female

DRUGS (3)
  1. ADVAIR DISKUS 100/50 [Suspect]
     Indication: BRONCHOSPASM
     Route: 055
     Dates: start: 20100704, end: 20100707
  2. MULTI-VITAMIN [Concomitant]
  3. CALTRATE [Concomitant]

REACTIONS (5)
  - FATIGUE [None]
  - ILL-DEFINED DISORDER [None]
  - NASOPHARYNGITIS [None]
  - OROPHARYNGEAL PAIN [None]
  - PRODUCTIVE COUGH [None]
